FAERS Safety Report 19710506 (Version 3)
Quarter: 2021Q3

REPORT INFORMATION
  Report Type: Spontaneous
  Country: GB (occurrence: GB)
  Receive Date: 20210816
  Receipt Date: 20210925
  Transmission Date: 20211014
  Serious: Yes (Death, Hospitalization)
  Sender: FDA-Public Use
  Company Number: GB-AMGEN-GBRNI2020016482

PATIENT
  Age: 44 Year
  Sex: Female

DRUGS (62)
  1. TRASTUZUMAB. [Suspect]
     Active Substance: TRASTUZUMAB
     Dosage: 441 MILLIGRAM, Q3WK
     Route: 042
     Dates: start: 20180404, end: 20191218
  2. PERTUZUMAB. [Suspect]
     Active Substance: PERTUZUMAB
     Indication: BREAST CANCER
     Dosage: 840 MILLIGRAM, Q3WK
     Route: 042
     Dates: start: 20171107, end: 20171107
  3. PARACETAMOL [Concomitant]
     Active Substance: ACETAMINOPHEN
     Indication: ANALGESIC THERAPY
     Dosage: 1 GRAM, AS NECESSARY
     Route: 048
     Dates: start: 20190219
  4. PARACETAMOL [Concomitant]
     Active Substance: ACETAMINOPHEN
  5. OXYCODONE [Concomitant]
     Active Substance: OXYCODONE
     Dosage: 7.5 MILLIGRAM
     Route: 058
     Dates: start: 20191028
  6. OXYCODONE [Concomitant]
     Active Substance: OXYCODONE
     Dosage: 5 UNK
     Route: 048
     Dates: start: 20191028
  7. CIPROFLOXACIN. [Concomitant]
     Active Substance: CIPROFLOXACIN
     Dosage: 500 MILLIGRAM 0.5DAY
     Route: 048
     Dates: start: 20191028, end: 20191031
  8. FEMARA [Suspect]
     Active Substance: LETROZOLE
     Indication: BREAST CANCER METASTATIC
  9. TAXOTERE [Suspect]
     Active Substance: DOCETAXEL
     Indication: BREAST CANCER METASTATIC
  10. CHLORHEXIDINE [Concomitant]
     Active Substance: CHLORHEXIDINE
  11. OXALIPLATIN. [Concomitant]
     Active Substance: OXALIPLATIN
     Indication: GASTRIC CANCER
     Dosage: 250 MILLIGRAM
     Route: 042
     Dates: start: 20180611, end: 20180731
  12. CODEINE [Concomitant]
     Active Substance: CODEINE
  13. LORAZEPAM. [Concomitant]
     Active Substance: LORAZEPAM
     Dosage: 1 MILLIGRAM, AS NECESSARY
     Route: 048
  14. LORAZEPAM. [Concomitant]
     Active Substance: LORAZEPAM
  15. LANSOPRAZOLE. [Concomitant]
     Active Substance: LANSOPRAZOLE
     Indication: GASTRIC ULCER
     Dosage: 30 MILLIGRAM
     Route: 048
     Dates: start: 20180209
  16. ACICLOVIR [Concomitant]
     Active Substance: ACYCLOVIR
     Dosage: UNK
     Route: 061
     Dates: start: 20171222
  17. DEXAMETHASONE. [Concomitant]
     Active Substance: DEXAMETHASONE
     Dosage: 8 UNK
     Route: 048
     Dates: start: 20180118, end: 20180121
  18. TAXOTERE [Suspect]
     Active Substance: DOCETAXEL
     Indication: BREAST CANCER
     Dosage: 148 MILLIGRAM, Q3WK
     Route: 042
     Dates: start: 20171106, end: 20180209
  19. METOCLOPRAMIDE. [Concomitant]
     Active Substance: METOCLOPRAMIDE
     Dosage: 10 MILLIGRAM
     Route: 042
     Dates: start: 20180119, end: 20180119
  20. FLUOROURACIL. [Concomitant]
     Active Substance: FLUOROURACIL
     Indication: GASTRIC CANCER
     Dosage: 2550 MILLIGRAM, QWK
     Route: 042
     Dates: start: 20180731, end: 20180925
  21. CHLORHEXIDINE [Concomitant]
     Active Substance: CHLORHEXIDINE
     Dosage: 10 MILLILITER
     Route: 048
     Dates: start: 20180611
  22. FLUCLOXACILLIN [Concomitant]
     Active Substance: FLUCLOXACILLIN
     Dosage: 1 GRAM, QD
     Route: 048
     Dates: start: 20190222, end: 20190301
  23. CAPECITABINE. [Concomitant]
     Active Substance: CAPECITABINE
     Dosage: UNK
     Route: 048
  24. LAXIDO [Concomitant]
     Active Substance: POLYETHYLENE GLYCOL 3350\POTASSIUM CHLORIDE\SODIUM BICARBONATE\SODIUM CHLORIDE
     Route: 048
  25. AMITRIPTYLINE HYDROCHLORIDE. [Concomitant]
     Active Substance: AMITRIPTYLINE HYDROCHLORIDE
     Dosage: UNK
     Route: 048
  26. SODIUM CHLORIDE. [Concomitant]
     Active Substance: SODIUM CHLORIDE
  27. CODEINE [Concomitant]
     Active Substance: CODEINE
     Indication: ANALGESIC THERAPY
     Dosage: 30 MILLIGRAM
     Route: 048
  28. NASEPTIN [Concomitant]
     Active Substance: CHLORHEXIDINE HYDROCHLORIDE\NEOMYCIN SULFATE
     Indication: MUCOSAL INFECTION
     Dosage: DROP (1/12 MILLILITRE), QD
     Route: 047
     Dates: start: 20171129, end: 20171222
  29. ONDANSETRON [Concomitant]
     Active Substance: ONDANSETRON
     Dosage: 8 MILLIGRAM, QD
     Route: 042
     Dates: start: 20180611, end: 20180611
  30. TRASTUZUMAB. [Suspect]
     Active Substance: TRASTUZUMAB
     Indication: BREAST CANCER METASTATIC
     Dosage: 472.5 MILLIGRAM, Q3WK
     Route: 042
     Dates: start: 20171206, end: 20180404
  31. PERTUZUMAB. [Suspect]
     Active Substance: PERTUZUMAB
     Dosage: 420 MILLIGRAM, Q3WK
     Route: 042
     Dates: start: 20171206
  32. METOCLOPRAMIDE. [Concomitant]
     Active Substance: METOCLOPRAMIDE
     Indication: NAUSEA
     Dosage: 10 MILLIGRAM
     Route: 042
     Dates: start: 20171228, end: 20171228
  33. METOCLOPRAMIDE. [Concomitant]
     Active Substance: METOCLOPRAMIDE
     Dosage: 10 MILLIGRAM
     Route: 048
     Dates: start: 20180611
  34. FLUCLOXACILLIN [Concomitant]
     Active Substance: FLUCLOXACILLIN
     Dosage: 1 GRAM, QD
     Route: 048
     Dates: start: 20190313, end: 20190320
  35. RAMIPRIL. [Concomitant]
     Active Substance: RAMIPRIL
     Dosage: 2.5 MILLIGRAM, AS NECESSARY
     Route: 048
  36. DEXAMETHASONE. [Concomitant]
     Active Substance: DEXAMETHASONE
     Dosage: 6.6 MILLIGRAM
     Route: 042
     Dates: start: 20180611, end: 20180611
  37. FILGRASTIM [Suspect]
     Active Substance: FILGRASTIM
     Dosage: 480 MICROGRAM
     Route: 058
     Dates: start: 20171229, end: 20180102
  38. FILGRASTIM [Suspect]
     Active Substance: FILGRASTIM
     Dosage: 480 MICROGRAM, QD
     Route: 058
     Dates: start: 20180120, end: 20180124
  39. FEMARA [Suspect]
     Active Substance: LETROZOLE
     Indication: BREAST CANCER
     Dosage: 20 MILLIGRAM, QD
     Route: 048
     Dates: start: 20180209, end: 20180608
  40. SODIUM CROMOGLYCATE [Concomitant]
     Active Substance: CROMOLYN SODIUM
     Indication: EYE PAIN
     Dosage: EYE DROP
     Route: 047
  41. LANSOPRAZOLE. [Concomitant]
     Active Substance: LANSOPRAZOLE
  42. OMEPRAZOLE. [Concomitant]
     Active Substance: OMEPRAZOLE
     Indication: GASTROINTESTINAL DISORDER PROPHYLAXIS
     Dosage: 40 MILLIGRAM
     Route: 048
     Dates: start: 20191028
  43. DEXAMETHASONE. [Concomitant]
     Active Substance: DEXAMETHASONE
     Dosage: 8 MILLIGRAM, QD
     Route: 048
     Dates: start: 20171227, end: 20171230
  44. DEXAMETHASONE. [Concomitant]
     Active Substance: DEXAMETHASONE
     Dosage: 8 MILLIGRAM 4D
     Route: 048
     Dates: start: 20171205, end: 20171208
  45. ONDANSETRON [Concomitant]
     Active Substance: ONDANSETRON
     Dosage: 4 MILLIGRAM, QD
     Route: 042
     Dates: start: 20180830, end: 20180830
  46. TRASTUZUMAB. [Suspect]
     Active Substance: TRASTUZUMAB
     Indication: BREAST CANCER
     Dosage: 630 MILLIGRAM, Q3WK
     Route: 042
     Dates: start: 20171107, end: 20171107
  47. PARACETAMOL [Concomitant]
     Active Substance: ACETAMINOPHEN
  48. FLUOROURACIL. [Concomitant]
     Active Substance: FLUOROURACIL
     Dosage: 2050 MILLIGRAM, QWK
     Route: 042
     Dates: start: 20180925, end: 20181218
  49. CAPECITABINE. [Concomitant]
     Active Substance: CAPECITABINE
  50. SENNA [Concomitant]
     Active Substance: SENNA LEAF\SENNOSIDES\SENNOSIDES A AND B
     Dosage: 7.5 MILLIGRAM
     Route: 048
     Dates: start: 20190919
  51. ACICLOVIR [Concomitant]
     Active Substance: ACYCLOVIR
  52. FILGRASTIM [Suspect]
     Active Substance: FILGRASTIM
     Indication: PRODUCT USED FOR UNKNOWN INDICATION
     Dosage: 480 MILLIGRAM
     Route: 058
     Dates: start: 20171207, end: 20171211
  53. PARACETAMOL [Concomitant]
     Active Substance: ACETAMINOPHEN
     Indication: PAIN
     Dosage: 1 GRAM
     Route: 042
     Dates: start: 20190830, end: 20190830
  54. METOCLOPRAMIDE. [Concomitant]
     Active Substance: METOCLOPRAMIDE
     Indication: PREMEDICATION
     Dosage: 10 MILLIGRAM
     Route: 042
     Dates: start: 20171206, end: 20171206
  55. METOCLOPRAMIDE. [Concomitant]
     Active Substance: METOCLOPRAMIDE
     Dosage: 30 UNK
     Route: 058
     Dates: start: 20191028
  56. FLUCLOXACILLIN [Concomitant]
     Active Substance: FLUCLOXACILLIN
     Dosage: 1 GRAM 3D
     Route: 042
     Dates: start: 20190219, end: 20190221
  57. LOPERAMIDE [Concomitant]
     Active Substance: LOPERAMIDE
     Indication: DIARRHOEA
     Dosage: 2 MILLIGRAM
     Route: 048
     Dates: start: 20180611
  58. ZOPICLONE [Concomitant]
     Active Substance: ZOPICLONE
     Indication: SEDATION
     Dosage: 7.5 MILLIGRAM, QD
     Route: 048
  59. CISPLATIN. [Concomitant]
     Active Substance: CISPLATIN
     Indication: GASTRIC CANCER
     Dosage: 89 MILLIGRAM
     Route: 042
     Dates: start: 20180731, end: 20181218
  60. CHLORAMPHENICOL [Concomitant]
     Active Substance: CHLORAMPHENICOL
     Dosage: DROP (1/12 MILLILITRE), QD
     Route: 047
     Dates: start: 20171129, end: 20171222
  61. LEVOMEPROMAZINE [Concomitant]
     Active Substance: LEVOMEPROMAZINE
     Dosage: 6.25 MILLIGRAM
     Route: 058
     Dates: start: 20191028
  62. NASEPTIN [Concomitant]
     Active Substance: CHLORHEXIDINE HYDROCHLORIDE\NEOMYCIN SULFATE
     Dosage: UNK
     Route: 045
     Dates: start: 20171129, end: 20171222

REACTIONS (4)
  - Off label use [Unknown]
  - Disease progression [Fatal]
  - Diarrhoea [Recovered/Resolved]
  - Vomiting [Recovered/Resolved]

NARRATIVE: CASE EVENT DATE: 20180830
